FAERS Safety Report 20858682 (Version 2)
Quarter: 2022Q3

REPORT INFORMATION
  Report Type: Report from Study
  Country: KR (occurrence: KR)
  Receive Date: 20220522
  Receipt Date: 20220707
  Transmission Date: 20221027
  Serious: Yes (Death, Other)
  Sender: FDA-Public Use
  Company Number: KR-BRISTOL-MYERS SQUIBB COMPANY-2022-043554

PATIENT
  Age: 27 Year
  Sex: Male

DRUGS (2)
  1. YERVOY [Suspect]
     Active Substance: IPILIMUMAB
     Indication: Pleomorphic malignant fibrous histiocytoma
     Dosage: 50/10 MG/ML, ONCE
     Route: 042
     Dates: start: 20220503, end: 20220503
  2. OPDIVO [Suspect]
     Active Substance: NIVOLUMAB
     Indication: Product used for unknown indication
     Dosage: 100/10 MG/ML, ONCE
     Route: 042
     Dates: start: 20220503, end: 20220503

REACTIONS (1)
  - Death [Fatal]

NARRATIVE: CASE EVENT DATE: 20220506
